FAERS Safety Report 25741994 (Version 2)
Quarter: 2025Q4

REPORT INFORMATION
  Report Type: Report from Study
  Country: US (occurrence: US)
  Receive Date: 20250829
  Receipt Date: 20251016
  Transmission Date: 20260118
  Serious: Yes (Hospitalization, Other)
  Sender: IPSEN BIOPHARMACEUTICALS, INC.
  Company Number: US-IPSEN Group, Research and Development- 2024-01331

PATIENT
  Age: 3 Year
  Sex: Male

DRUGS (22)
  1. TAZEMETOSTAT HYDROBROMIDE [Suspect]
     Active Substance: TAZEMETOSTAT HYDROBROMIDE
     Indication: Rhabdoid tumour
     Dosage: UNKNOWN
     Route: 065
  2. TAZEMETOSTAT HYDROBROMIDE [Suspect]
     Active Substance: TAZEMETOSTAT HYDROBROMIDE
     Indication: Off label use
  3. NIVOLUMAB [Suspect]
     Active Substance: NIVOLUMAB
     Indication: Rhabdoid tumour
  4. NELVUTAMIG [Suspect]
     Active Substance: NELVUTAMIG
     Indication: Rhabdoid tumour
  5. EMLA [Concomitant]
     Active Substance: LIDOCAINE\PRILOCAINE
  6. ZOFRAN [Concomitant]
     Active Substance: ONDANSETRON HYDROCHLORIDE
     Dosage: PRN
  7. BACTRIM [Concomitant]
     Active Substance: SULFAMETHOXAZOLE\TRIMETHOPRIM
  8. PREDNISOLONE [Concomitant]
     Active Substance: PREDNISOLONE
  9. LOPERAMIDE [Concomitant]
     Active Substance: LOPERAMIDE
  10. INFLIXIMAB [Concomitant]
     Active Substance: INFLIXIMAB
  11. METHYLPREDNISOLONE [Concomitant]
     Active Substance: METHYLPREDNISOLONE
  12. ACETAMINOPHEN [Concomitant]
     Active Substance: ACETAMINOPHEN
  13. METRONIDAZOLE [Concomitant]
     Active Substance: METRONIDAZOLE
  14. CEFEPIME [Concomitant]
     Active Substance: CEFEPIME HYDROCHLORIDE
  15. MELATONIN [Concomitant]
     Active Substance: MELATONIN
  16. FAMOTIDINE [Concomitant]
     Active Substance: FAMOTIDINE
  17. PANTOPRAZOLE [Concomitant]
     Active Substance: PANTOPRAZOLE
     Dosage: PRN
  18. SIMETHICONE (DIMETHICONE) [Concomitant]
     Active Substance: DIMETHICONE
     Dosage: PRN
  19. DIPHENHYDRAMINE [Concomitant]
     Active Substance: DIPHENHYDRAMINE
     Dosage: ONCE, PRN
  20. MORPHINE [Concomitant]
     Active Substance: MORPHINE
     Dosage: PRN
  21. FENTANYL [Concomitant]
     Active Substance: FENTANYL
     Dosage: PRN
  22. VEDOLIZUMAB [Concomitant]
     Active Substance: VEDOLIZUMAB
     Dosage: TWICE

REACTIONS (9)
  - Diarrhoea [Not Recovered/Not Resolved]
  - Colitis [Not Recovered/Not Resolved]
  - Pneumatosis [Not Recovered/Not Resolved]
  - Aspartate aminotransferase increased [Not Recovered/Not Resolved]
  - Alanine aminotransferase increased [Not Recovered/Not Resolved]
  - Gamma-glutamyltransferase increased [Not Recovered/Not Resolved]
  - Pneumatosis [Not Recovered/Not Resolved]
  - Pneumatosis [Not Recovered/Not Resolved]
  - Off label use [Unknown]

NARRATIVE: CASE EVENT DATE: 20240123
